FAERS Safety Report 9027865 (Version 1)
Quarter: 2013Q1

REPORT INFORMATION
  Report Type: Spontaneous
  Country: US (occurrence: None)
  Receive Date: 20130115
  Receipt Date: 20130115
  Transmission Date: 20140127
  Serious: Yes (Life-Threatening)
  Sender: FDA-Public Use
  Company Number: None

PATIENT
  Sex: Female
  Weight: 90.27 kg

DRUGS (1)
  1. CYMBALTA [Suspect]

REACTIONS (1)
  - Hepatic cirrhosis [None]
